FAERS Safety Report 6416314-X (Version None)
Quarter: 2009Q4

REPORT INFORMATION
  Report Type: 
  Country: None (occurrence: None)
  Receive Date: 20091027
  Receipt Date: 20091016
  Transmission Date: 20100525
  Serious: Yes (Hospitalization)
  Sender: FDA-Public Use
  Company Number: FR-SANOFI-SYNTHELABO-A02200902696

PATIENT
  Sex: Male

DRUGS (4)
  1. ELVORINE [Suspect]
     Indication: COLON CANCER
     Route: 041
     Dates: start: 20090507
  2. FLUOROURACILE MYLAN [Suspect]
     Indication: COLON CANCER
     Dosage: 400 MG/M2 AT D1 AND 600 MG/M2 AT D2
     Route: 051
     Dates: start: 20090507
  3. AVASTIN [Suspect]
     Indication: COLON CANCER
     Route: 041
     Dates: start: 20090605, end: 20090820
  4. ELOXATIN [Suspect]
     Indication: COLON CANCER
     Route: 051
     Dates: start: 20090507

REACTIONS (1)
  - GASTROINTESTINAL PERFORATION [None]
